FAERS Safety Report 12502339 (Version 4)
Quarter: 2016Q3

REPORT INFORMATION
  Report Type: Spontaneous
  Country: IT (occurrence: IT)
  Receive Date: 20160627
  Receipt Date: 20160726
  Transmission Date: 20161109
  Serious: Yes (Death, Life-Threatening, Hospitalization, Other)
  Sender: FDA-Public Use
  Company Number: IT-GILEAD-2016-0210200

PATIENT
  Age: 49 Year
  Sex: Male
  Weight: 72 kg

DRUGS (5)
  1. ZYDELIG [Suspect]
     Active Substance: IDELALISIB
     Indication: CHRONIC LYMPHOCYTIC LEUKAEMIA
     Dosage: 150 MG, BID
     Route: 048
     Dates: start: 20160303, end: 20160412
  2. VORICONAZOLE. [Concomitant]
     Active Substance: VORICONAZOLE
  3. BACTRIM [Concomitant]
     Active Substance: SULFAMETHOXAZOLE\TRIMETHOPRIM
  4. ZYDELIG [Suspect]
     Active Substance: IDELALISIB
     Indication: B-CELL SMALL LYMPHOCYTIC LYMPHOMA
  5. RITUXIMAB [Concomitant]
     Active Substance: RITUXIMAB

REACTIONS (6)
  - Pyrexia [Fatal]
  - Respiratory failure [Fatal]
  - Liver disorder [Fatal]
  - Pneumonia [Fatal]
  - Pneumonitis [Fatal]
  - General physical health deterioration [Unknown]

NARRATIVE: CASE EVENT DATE: 20160412
